FAERS Safety Report 4435296-3 (Version None)
Quarter: 2004Q3

REPORT INFORMATION
  Report Type: 
  Country: None (occurrence: None)
  Receive Date: 20040827
  Receipt Date: 20040820
  Transmission Date: 20050211
  Serious: Yes (Hospitalization)
  Sender: FDA-Public Use
  Company Number: US-BRISTOL-MYERS SQUIBB COMPANY-12677928

PATIENT
  Age: 63 Year
  Sex: Male
  Weight: 66 kg

DRUGS (5)
  1. TAXOL [Suspect]
     Indication: OESOPHAGEAL CARCINOMA
     Dosage: START DATE:  03-MAY-2004
     Route: 042
     Dates: start: 20040524, end: 20040524
  2. CARBOPLATIN [Suspect]
     Indication: OESOPHAGEAL CARCINOMA
     Dosage: START DATE:  03-MAY-2004, CONTINUOUS INFUSION
     Route: 042
     Dates: start: 20040524, end: 20040524
  3. FLUOROURACIL [Suspect]
     Indication: OESOPHAGEAL CARCINOMA
     Dosage: LAST DOSE: 03-MAY-2004
     Route: 042
     Dates: start: 20040527, end: 20040527
  4. RADIATION THERAPY [Concomitant]
     Indication: OESOPHAGEAL CARCINOMA
     Dates: end: 20040616
  5. COUMADIN [Concomitant]
     Indication: PROPHYLAXIS
     Dates: start: 20040501

REACTIONS (4)
  - DEHYDRATION [None]
  - DEPRESSION [None]
  - LOBAR PNEUMONIA [None]
  - MUCOSAL INFLAMMATION [None]
